FAERS Safety Report 18491107 (Version 1)
Quarter: 2020Q4

REPORT INFORMATION
  Report Type: Spontaneous
  Country: US (occurrence: US)
  Receive Date: 20201111
  Receipt Date: 20201111
  Transmission Date: 20210114
  Serious: No
  Sender: FDA-Public Use
  Company Number: US-PERRIGO-19US013813

PATIENT
  Sex: Female
  Weight: 46.26 kg

DRUGS (2)
  1. FAMOTIDINE. [Suspect]
     Active Substance: FAMOTIDINE
     Indication: GASTRITIS EROSIVE
     Dosage: 20 MG, BID
     Route: 048
     Dates: start: 201910
  2. HYDROXYCHLOROQUINE [Concomitant]
     Active Substance: HYDROXYCHLOROQUINE
     Indication: PROPHYLAXIS
     Dosage: UNK
     Route: 065
     Dates: start: 2018

REACTIONS (3)
  - Arthralgia [Not Recovered/Not Resolved]
  - Incorrect product administration duration [Unknown]
  - Off label use [Unknown]

NARRATIVE: CASE EVENT DATE: 201910
